FAERS Safety Report 5130210-X (Version None)
Quarter: 2006Q4

REPORT INFORMATION
  Report Type: 
  Country: None (occurrence: None)
  Receive Date: 20061013
  Receipt Date: 20061002
  Transmission Date: 20070319
  Serious: Yes (Death)
  Sender: FDA-Public Use
  Company Number: 2006000649

PATIENT
  Age: 45 Year

DRUGS (2)
  1. ROXICODONE [Suspect]
     Dosage: ORAL
     Route: 048
  2. ETHANOL [Suspect]
     Dosage: ORAL
     Route: 048

REACTIONS (1)
  - DEATH [None]
